FAERS Safety Report 21056183 (Version 1)
Quarter: 2022Q3

REPORT INFORMATION
  Report Type: Spontaneous
  Country: US (occurrence: US)
  Receive Date: 20220708
  Receipt Date: 20220708
  Transmission Date: 20221026
  Serious: Yes (Hospitalization, Other)
  Sender: FDA-Public Use
  Company Number: US-SUN PHARMACEUTICAL INDUSTRIES LTD-2022R1-343534

PATIENT
  Age: 23 Year
  Sex: Male

DRUGS (3)
  1. CLOZAPINE [Suspect]
     Active Substance: CLOZAPINE
     Indication: Bipolar I disorder
     Dosage: 400 MILLIGRAM, AT BEDTIME
     Route: 065
  2. CLOZAPINE [Suspect]
     Active Substance: CLOZAPINE
     Dosage: 200 MILLIGRAM, AT BEDTIME
     Route: 065
  3. CLOZAPINE [Suspect]
     Active Substance: CLOZAPINE
     Dosage: 25 MILLIGRAM, AT BEDTIME
     Route: 065

REACTIONS (6)
  - Toxicity to various agents [Unknown]
  - Somnolence [Unknown]
  - Respiratory depression [Unknown]
  - Fall [Unknown]
  - Treatment noncompliance [Unknown]
  - Salivary hypersecretion [Unknown]
